FAERS Safety Report 9540611 (Version 2)
Quarter: 2014Q3

REPORT INFORMATION
  Report Type: Spontaneous
  Country: US (occurrence: US)
  Receive Date: 20130920
  Receipt Date: 20140821
  Transmission Date: 20150326
  Serious: Yes (Hospitalization, Other)
  Sender: FDA-Public Use
  Company Number: US-009507513-1309USA008209

PATIENT
  Sex: Female
  Weight: 134.97 kg

DRUGS (1)
  1. NUVARING [Suspect]
     Active Substance: ETHINYL ESTRADIOL\ETONOGESTREL
     Indication: CONTRACEPTION
     Dosage: UNK
     Route: 067
     Dates: start: 200807, end: 201305

REACTIONS (10)
  - Infection [Unknown]
  - Infection [Unknown]
  - Vaginal infection [Unknown]
  - Abortion induced [Unknown]
  - Thrombophlebitis superficial [Unknown]
  - Paraplegia [Recovered/Resolved]
  - Subcutaneous abscess [Unknown]
  - Cellulitis [Unknown]
  - Deep vein thrombosis [Unknown]
  - Paraplegia [Unknown]

NARRATIVE: CASE EVENT DATE: 201105
